FAERS Safety Report 8964818 (Version 5)
Quarter: 2013Q2

REPORT INFORMATION
  Report Type: Spontaneous
  Country: CA (occurrence: CA)
  Receive Date: 20121213
  Receipt Date: 20130521
  Transmission Date: 20140414
  Serious: Yes (Hospitalization)
  Sender: FDA-Public Use
  Company Number: CA-ROCHE-1168076

PATIENT
  Age: 12 Year
  Sex: Female

DRUGS (2)
  1. XOLAIR [Suspect]
     Indication: ASTHMA
     Route: 058
     Dates: start: 20121026
  2. XOLAIR [Suspect]
     Route: 065

REACTIONS (4)
  - Viral myocarditis [Unknown]
  - Anaemia [Unknown]
  - Asthma [Unknown]
  - Bronchitis [Unknown]
